FAERS Safety Report 18992059 (Version 1)
Quarter: 2021Q1

REPORT INFORMATION
  Report Type: Spontaneous
  Country: US (occurrence: US)
  Receive Date: 20210309
  Receipt Date: 20210309
  Transmission Date: 20210420
  Serious: Yes (Death, Hospitalization)
  Sender: FDA-Public Use
  Company Number: None

PATIENT
  Age: 61 Year
  Sex: Female

DRUGS (16)
  1. SPIRONOLACTONE. [Concomitant]
     Active Substance: SPIRONOLACTONE
  2. PILOCARPINE. [Concomitant]
     Active Substance: PILOCARPINE
  3. SILDENAFIL. [Concomitant]
     Active Substance: SILDENAFIL
  4. ISOSORIBIDE MONONITRATE [Concomitant]
  5. POTASSIUM CHLORIDE. [Concomitant]
     Active Substance: POTASSIUM CHLORIDE
  6. ATORVASTATIN [Concomitant]
     Active Substance: ATORVASTATIN
  7. METOLAZONE. [Concomitant]
     Active Substance: METOLAZONE
  8. BUMETANIDE. [Concomitant]
     Active Substance: BUMETANIDE
  9. MEGESTROL [Concomitant]
     Active Substance: MEGESTROL
  10. APIXABAN [Concomitant]
     Active Substance: APIXABAN
  11. AMBRISENTAN 10MG TABLETS 30/BO: 10MG MYLAN [Suspect]
     Active Substance: AMBRISENTAN
     Indication: PULMONARY ARTERIAL HYPERTENSION
     Route: 048
     Dates: start: 20170222, end: 202102
  12. CELLCEPT [Concomitant]
     Active Substance: MYCOPHENOLATE MOFETIL\MYCOPHENOLATE MOFETIL HYDROCHLORIDE
  13. HYDROXYCHLOROQUINE [Concomitant]
     Active Substance: HYDROXYCHLOROQUINE
  14. BISOPROLOL [Concomitant]
     Active Substance: BISOPROLOL
  15. CLOPIDOGREL [Concomitant]
     Active Substance: CLOPIDOGREL BISULFATE
  16. OMEPRAZOLE. [Concomitant]
     Active Substance: OMEPRAZOLE

REACTIONS (9)
  - Chest pain [None]
  - COVID-19 pneumonia [None]
  - Cardiac arrest [None]
  - Cardio-respiratory arrest [None]
  - SARS-CoV-2 test positive [None]
  - Acute myocardial infarction [None]
  - Ageusia [None]
  - Dyspnoea [None]
  - Oxygen saturation decreased [None]

NARRATIVE: CASE EVENT DATE: 20210121
